FAERS Safety Report 5934224-9 (Version None)
Quarter: 2008Q4

REPORT INFORMATION
  Report Type: 
  Country: None (occurrence: None)
  Receive Date: 20081028
  Receipt Date: 20081028
  Transmission Date: 20090506
  Serious: Yes (Life-Threatening, Hospitalization)
  Sender: FDA-Public Use
  Company Number: None

PATIENT
  Age: 56 Year
  Sex: Female
  Weight: 75.5 kg

DRUGS (7)
  1. AMOXAPINE [Suspect]
     Indication: DEPRESSION
     Dosage: 100 MG NIGHTLY PO
     Route: 048
     Dates: start: 20071020, end: 20081020
  2. SEROQUEL [Suspect]
     Indication: DEPRESSION
     Dosage: 100 MG NIGHTLY PO
     Route: 048
     Dates: start: 20021020, end: 20081027
  3. PAXIL [Suspect]
     Indication: DEPRESSION
     Dosage: 40 MG NIGHTLY PO
     Route: 048
     Dates: start: 20021020, end: 20081027
  4. OMEPRAZOLE [Concomitant]
  5. AMOXAPINE [Concomitant]
  6. PAROXETINE HCL [Concomitant]
  7. CIPROFLOXACIN [Concomitant]

REACTIONS (21)
  - ABNORMAL BEHAVIOUR [None]
  - ALCOHOL USE [None]
  - AMNESIA [None]
  - CONFUSIONAL STATE [None]
  - DEATH OF RELATIVE [None]
  - DECREASED APPETITE [None]
  - DYSURIA [None]
  - HEADACHE [None]
  - HOT FLUSH [None]
  - HYPOKALAEMIA [None]
  - HYPONATRAEMIA [None]
  - LOSS OF CONSCIOUSNESS [None]
  - MALAISE [None]
  - NAUSEA [None]
  - SENSATION OF HEAVINESS [None]
  - SYNCOPE [None]
  - TORSADE DE POINTES [None]
  - TREMOR [None]
  - URINARY INCONTINENCE [None]
  - URINARY TRACT INFECTION [None]
  - VENTRICULAR TACHYCARDIA [None]
